FAERS Safety Report 23210075 (Version 1)
Quarter: 2023Q4

REPORT INFORMATION
  Report Type: Spontaneous
  Country: GB (occurrence: GB)
  Receive Date: 20231121
  Receipt Date: 20231121
  Transmission Date: 20240110
  Serious: Yes (Other)
  Sender: FDA-Public Use
  Company Number: None

PATIENT
  Age: 76 Year
  Sex: Male
  Weight: 114 kg

DRUGS (19)
  1. CANAGLIFLOZIN [Suspect]
     Active Substance: CANAGLIFLOZIN
     Indication: Product used for unknown indication
     Dosage: PREFERABLY BEFORE B...
     Route: 048
     Dates: start: 20231009, end: 20231106
  2. CALCIUM CARBONATE [Concomitant]
     Active Substance: CALCIUM CARBONATE
     Dates: start: 20230331
  3. BISOPROLOL [Concomitant]
     Active Substance: BISOPROLOL\BISOPROLOL FUMARATE
     Dates: start: 20230403
  4. TIOTROPIUM BROMIDE [Concomitant]
     Active Substance: TIOTROPIUM BROMIDE
     Route: 055
     Dates: start: 20230306
  5. FINASTERIDE [Concomitant]
     Active Substance: FINASTERIDE
     Dates: start: 20221021
  6. HYDROCORTISONE [Concomitant]
     Active Substance: HYDROCORTISONE
     Dosage: APPLY - REVIEW WITH GP IF NEEDING F...
     Dates: start: 20230908, end: 20230922
  7. LANSOPRAZOLE [Concomitant]
     Active Substance: LANSOPRAZOLE
     Dates: start: 20231106
  8. POLYETHYLENE GLYCOL 3350\POTASSIUM CHLORIDE\SODIUM BICARBONATE\SODIUM [Concomitant]
     Active Substance: POLYETHYLENE GLYCOL 3350\POTASSIUM CHLORIDE\SODIUM BICARBONATE\SODIUM CHLORIDE
     Dosage: 1-2 AS REQUIRED
     Dates: start: 20230206
  9. LEVOTHYROXINE [Concomitant]
     Active Substance: LEVOTHYROXINE
     Dosage: MORNING
     Dates: start: 20230206
  10. LOSARTAN [Concomitant]
     Active Substance: LOSARTAN
     Dates: start: 20230206
  11. METFORMIN [Concomitant]
     Active Substance: METFORMIN HYDROCHLORIDE
     Dates: start: 20230713
  12. LATANOPROST [Concomitant]
     Active Substance: LATANOPROST
     Dosage: BOTH EYES AT NIGHT
     Dates: start: 20230206
  13. LUPRON DEPOT [Concomitant]
     Active Substance: LEUPROLIDE ACETATE
     Route: 058
     Dates: start: 20230913
  14. QUININE [Concomitant]
     Active Substance: QUININE
     Dosage: JUST BEFORE BEDTIME.
     Dates: start: 20231026
  15. RIVAROXABAN [Concomitant]
     Active Substance: RIVAROXABAN
     Dosage: WITH FOOD
     Dates: start: 20230206
  16. ALBUTEROL [Concomitant]
     Active Substance: ALBUTEROL
     Dosage: INHALE1 OR 2 DOSES
     Route: 055
     Dates: start: 20230928, end: 20231026
  17. SCHERIPROCT [CINCHOCAINE HYDROCHLORIDE;PREDNISOLONE CAPROATE] [Concomitant]
     Indication: Haemorrhoids
     Dosage: APPLY AFTER OPENING BOWELS FOR UP TO 7 DAYS
     Dates: start: 20231009, end: 20231016
  18. SIMVASTATIN [Concomitant]
     Active Substance: SIMVASTATIN
     Dates: start: 20230206
  19. TAMSULOSIN HYDROCHLORIDE [Concomitant]
     Active Substance: TAMSULOSIN HYDROCHLORIDE
     Dates: start: 20221021

REACTIONS (2)
  - Rash erythematous [Recovered/Resolved]
  - Eye pruritus [Unknown]

NARRATIVE: CASE EVENT DATE: 20231030
